FAERS Safety Report 8005806-8 (Version None)
Quarter: 2011Q4

REPORT INFORMATION
  Report Type: 
  Country: None (occurrence: None)
  Receive Date: 20111223
  Receipt Date: 20111220
  Transmission Date: 20120403
  Serious: Yes (Disabling)
  Sender: FDA-Public Use
  Company Number: GB-PFIZER INC-2011307361

PATIENT
  Age: 48 Year
  Sex: Female

DRUGS (4)
  1. BLEOMYCIN [Concomitant]
     Indication: HODGKIN'S DISEASE
     Dosage: 13800 IU, ONCE EVERY 2 WEEKS
     Route: 041
     Dates: start: 20110719
  2. DACARBAZINE [Concomitant]
     Indication: HODGKIN'S DISEASE
     Dosage: 520 MG, ONCE EVERY 2 WEEKS
     Route: 041
     Dates: start: 20110719
  3. DOXORUBICIN HCL [Suspect]
     Indication: HODGKIN'S DISEASE
     Dosage: 35 MG, ONCE EVERY 2 WEEKS
     Route: 041
     Dates: start: 20110719
  4. VINBLASTINE [Concomitant]
     Indication: HODGKIN'S DISEASE
     Dosage: 8 MG, ONCE EVERY 2 WEEKS
     Route: 041
     Dates: start: 20110719

REACTIONS (1)
  - PALMAR-PLANTAR ERYTHRODYSAESTHESIA SYNDROME [None]
